FAERS Safety Report 6672054-3 (Version None)
Quarter: 2010Q2

REPORT INFORMATION
  Report Type: 
  Country: None (occurrence: None)
  Receive Date: 20100406
  Receipt Date: 20100322
  Transmission Date: 20101027
  Serious: Yes (Other)
  Sender: FDA-Public Use
  Company Number: AUR-APL-2010-00868

PATIENT
  Age: 50 Year
  Sex: Male

DRUGS (2)
  1. RIBAVIRIN [Suspect]
     Indication: HEPATITIS C
  2. PEGINTERFERON ALFA-2B [Suspect]
     Indication: HEPATITIS C

REACTIONS (8)
  - ANEURYSM [None]
  - DRUG INEFFECTIVE [None]
  - EYE HAEMORRHAGE [None]
  - RETINAL EXUDATES [None]
  - RETINAL VEIN OCCLUSION [None]
  - RETINOPATHY [None]
  - SCOTOMA [None]
  - VISUAL FIELD DEFECT [None]
